FAERS Safety Report 17231859 (Version 5)
Quarter: 2020Q2

REPORT INFORMATION
  Report Type: Spontaneous
  Country: US (occurrence: US)
  Receive Date: 20200103
  Receipt Date: 20200605
  Transmission Date: 20200713
  Serious: No
  Sender: FDA-Public Use
  Company Number: US-PFIZER INC-2019563301

PATIENT
  Age: 43 Year
  Sex: Female

DRUGS (39)
  1. PARAPLATIN [Concomitant]
     Active Substance: CARBOPLATIN
     Dosage: 900 MG, SINGLE
     Dates: start: 20150220, end: 20150220
  2. PARAPLATIN [Concomitant]
     Active Substance: CARBOPLATIN
     Dosage: 900 MG, SINGLE
     Dates: start: 20150403, end: 20150403
  3. PARAPLATIN [Concomitant]
     Active Substance: CARBOPLATIN
     Dosage: 900 MG, SINGLE
     Dates: start: 20150515, end: 20150515
  4. FLUCONAZOLE. [Concomitant]
     Active Substance: FLUCONAZOLE
     Dosage: 100 MG, UNK
     Dates: start: 20150209, end: 20150427
  5. LEVOFLOXACIN. [Concomitant]
     Active Substance: LEVOFLOXACIN
     Dosage: 500 MG, UNK
     Dates: start: 20130919, end: 20160505
  6. LORAZEPAM. [Concomitant]
     Active Substance: LORAZEPAM
     Dosage: 0.5 MG, UNK
     Dates: start: 20150223, end: 20150403
  7. SULFAMETH/TMP [Concomitant]
     Active Substance: SULFAMETHOXAZOLE\TRIMETHOPRIM
     Dosage: UNK, 800/160 MG
  8. DOCETAXEL. [Suspect]
     Active Substance: DOCETAXEL
     Dosage: 120 MG, SINGLE
     Dates: start: 20150515, end: 20150515
  9. TAXOTERE [Concomitant]
     Active Substance: DOCETAXEL
     Dosage: 127 MG, SINGLE
     Dates: start: 20150220, end: 20150220
  10. VIT D [Concomitant]
     Active Substance: VITAMIN D NOS
     Dosage: UNK, 50,000
  11. DOCETAXEL. [Suspect]
     Active Substance: DOCETAXEL
     Dosage: 127 MG, SINGLE
     Dates: start: 20150220, end: 20150220
  12. DOCETAXEL. [Suspect]
     Active Substance: DOCETAXEL
     Dosage: 127 MG, SINGLE
     Dates: start: 20150313, end: 20150313
  13. ONDANSETRON ODT [Concomitant]
     Active Substance: ONDANSETRON
     Dosage: 8 MG, UNK
     Dates: start: 20150108, end: 20150427
  14. DEXAMETHASONE. [Concomitant]
     Active Substance: DEXAMETHASONE
     Dosage: 4 MG, UNK
     Dates: start: 20150126, end: 20150512
  15. DOCETAXEL. [Suspect]
     Active Substance: DOCETAXEL
     Dosage: 120 MG, SINGLE
     Dates: start: 20150515, end: 20150515
  16. TAXOTERE [Concomitant]
     Active Substance: DOCETAXEL
     Dosage: 120 MG, SINGLE
     Dates: start: 20150515, end: 20150515
  17. DOCETAXEL. [Suspect]
     Active Substance: DOCETAXEL
     Dosage: 127 MG, SINGLE
     Dates: start: 20150313, end: 20150313
  18. DOCETAXEL. [Suspect]
     Active Substance: DOCETAXEL
     Indication: INVASIVE DUCTAL BREAST CARCINOMA
     Dosage: 150 MG, SINGLE
     Dates: start: 20150130, end: 20150130
  19. DOCETAXEL. [Suspect]
     Active Substance: DOCETAXEL
     Dosage: 127 MG, SINGLE
     Dates: start: 20150220, end: 20150220
  20. DOCETAXEL. [Suspect]
     Active Substance: DOCETAXEL
     Dosage: 127 MG, SINGLE
     Dates: start: 20150403, end: 20150403
  21. DOCETAXEL. [Suspect]
     Active Substance: DOCETAXEL
     Dosage: 120 MG, SINGLE
     Dates: start: 20150424, end: 20150424
  22. TAXOTERE [Concomitant]
     Active Substance: DOCETAXEL
     Indication: INVASIVE DUCTAL BREAST CARCINOMA
     Dosage: 150 MG, SINGLE
     Dates: start: 20150130, end: 20150130
  23. OXYCODONE/ACETAMINOPHEN [Concomitant]
     Active Substance: ACETAMINOPHEN\OXYCODONE HYDROCHLORIDE
     Dosage: UNK, 5-325 MG
  24. HERCEPTIN [Concomitant]
     Active Substance: TRASTUZUMAB
     Indication: INVASIVE DUCTAL BREAST CARCINOMA
     Dosage: UNK
  25. DOCETAXEL. [Suspect]
     Active Substance: DOCETAXEL
     Indication: INVASIVE DUCTAL BREAST CARCINOMA
     Dosage: 150 MG, SINGLE
     Dates: start: 20150130, end: 20150130
  26. TAXOTERE [Concomitant]
     Active Substance: DOCETAXEL
     Dosage: 127 MG, SINGLE
     Dates: start: 20150313, end: 20150313
  27. TAXOTERE [Concomitant]
     Active Substance: DOCETAXEL
     Dosage: 120 MG, SINGLE
     Dates: start: 20150424, end: 20150424
  28. PARAPLATIN [Concomitant]
     Active Substance: CARBOPLATIN
     Dosage: 900 MG, SINGLE
     Dates: start: 20150313, end: 20150313
  29. PARAPLATIN [Concomitant]
     Active Substance: CARBOPLATIN
     Dosage: 900 MG, SINGLE
     Dates: start: 20150424, end: 20150424
  30. PROCHLORPERAZINE. [Concomitant]
     Active Substance: PROCHLORPERAZINE
     Dosage: 10 MG, UNK
     Dates: start: 20150126, end: 20150512
  31. DOCETAXEL. [Suspect]
     Active Substance: DOCETAXEL
     Dosage: 120 MG, SINGLE
     Dates: start: 20150424, end: 20150424
  32. PARAPLATIN [Concomitant]
     Active Substance: CARBOPLATIN
     Indication: INVASIVE DUCTAL BREAST CARCINOMA
     Dosage: 900 MG, SINGLE
     Dates: start: 20150130, end: 20150130
  33. AMOX-CLAV [Concomitant]
     Active Substance: AMOXICILLIN\CLAVULANATE POTASSIUM
     Dosage: 875 MG, UNK
     Dates: start: 20100708, end: 20160220
  34. ANUCORT-HC [Concomitant]
     Active Substance: HYDROCORTISONE ACETATE
     Dosage: 25 MG, UNK
     Route: 054
  35. AZITHROMYCIN ANHYDROUS. [Concomitant]
     Active Substance: AZITHROMYCIN ANHYDROUS
     Dosage: 250 MG, UNK
  36. DOCETAXEL. [Suspect]
     Active Substance: DOCETAXEL
     Dosage: 127 MG, SINGLE
     Dates: start: 20150403, end: 20150403
  37. TAXOTERE [Concomitant]
     Active Substance: DOCETAXEL
     Dosage: 127 MG, SINGLE
     Dates: start: 20150403, end: 20150403
  38. FLUCONAZOLE. [Concomitant]
     Active Substance: FLUCONAZOLE
     Dosage: 150 MG, UNK
     Dates: start: 20130326, end: 20151112
  39. LIDOCAINE/PRILOCAINE [Concomitant]
     Active Substance: LIDOCAINE\PRILOCAINE
     Dosage: 30 G, UNK

REACTIONS (5)
  - Hair colour changes [Not Recovered/Not Resolved]
  - Madarosis [Not Recovered/Not Resolved]
  - Hair texture abnormal [Not Recovered/Not Resolved]
  - Hair disorder [Not Recovered/Not Resolved]
  - Alopecia [Not Recovered/Not Resolved]

NARRATIVE: CASE EVENT DATE: 20151201
